FAERS Safety Report 9282921 (Version 1)
Quarter: 2013Q2

REPORT INFORMATION
  Report Type: Spontaneous
  Country: US (occurrence: US)
  Receive Date: 20130510
  Receipt Date: 20130510
  Transmission Date: 20140414
  Serious: Yes (Death)
  Sender: FDA-Public Use
  Company Number: GXBR2013US001013

PATIENT
  Age: 57 Year
  Sex: Male

DRUGS (8)
  1. ALPRAZOLAM TABLETS USP [Suspect]
     Indication: ANXIETY
     Dosage: 1 MG, PRN
     Route: 048
  2. FENTANYL [Suspect]
     Indication: BACK PAIN
     Route: 062
  3. MORPHINE [Suspect]
     Indication: BACK PAIN
     Dosage: UNK DF, UNK
  4. TEMAZEPAM CAPSULES USP [Suspect]
     Dosage: UNK DF, UNK
  5. OLANZAPINE [Suspect]
     Dosage: UNK DF, UNK
  6. OXAZEPAM CAPSULES USP [Suspect]
     Dosage: UNK DF, UNK
  7. HYDROMORPHONE [Suspect]
     Dosage: UNK DF, UNK
  8. ETHANOL [Suspect]
     Dosage: UNK DF, UNK

REACTIONS (3)
  - Toxicity to various agents [Fatal]
  - Accidental overdose [Fatal]
  - Pneumonia [Not Recovered/Not Resolved]
